FAERS Safety Report 10726950 (Version 1)
Quarter: 2015Q1

REPORT INFORMATION
  Report Type: Spontaneous
  Country: JP (occurrence: JP)
  Receive Date: 20150121
  Receipt Date: 20150121
  Transmission Date: 20150721
  Serious: Yes (Other)
  Sender: FDA-Public Use
  Company Number: PHHY2015JP005919

PATIENT
  Age: 8 Year
  Sex: Male

DRUGS (8)
  1. VINCRISTINE [Suspect]
     Active Substance: VINCRISTINE
     Indication: ATYPICAL TERATOID/RHABDOID TUMOUR OF CNS
     Route: 065
  2. ETOPOSIDE. [Suspect]
     Active Substance: ETOPOSIDE
     Indication: ATYPICAL TERATOID/RHABDOID TUMOUR OF CNS
     Route: 037
  3. DOXORUBICIN [Suspect]
     Active Substance: DOXORUBICIN
     Indication: ATYPICAL TERATOID/RHABDOID TUMOUR OF CNS
     Route: 065
  4. RADIOTHERAPY [Suspect]
     Active Substance: RADIATION THERAPY
     Indication: ATYPICAL TERATOID/RHABDOID TUMOUR OF CNS
     Route: 065
  5. CYCLOPHOSPHAMIDE. [Suspect]
     Active Substance: CYCLOPHOSPHAMIDE
     Indication: ATYPICAL TERATOID/RHABDOID TUMOUR OF CNS
     Route: 065
  6. CISPLATIN. [Suspect]
     Active Substance: CISPLATIN
     Indication: ATYPICAL TERATOID/RHABDOID TUMOUR OF CNS
     Route: 065
  7. L-PAM [Suspect]
     Active Substance: MELPHALAN
     Indication: ATYPICAL TERATOID/RHABDOID TUMOUR OF CNS
     Route: 065
  8. VINDESINE SULPHATE [Suspect]
     Active Substance: VINDESINE SULFATE
     Indication: ATYPICAL TERATOID/RHABDOID TUMOUR OF CNS
     Route: 065

REACTIONS (4)
  - General physical health deterioration [None]
  - Central nervous system lesion [Unknown]
  - Bone marrow failure [Unknown]
  - Mucous membrane disorder [Unknown]
